FAERS Safety Report 22178065 (Version 2)
Quarter: 2023Q2

REPORT INFORMATION
  Report Type: Spontaneous
  Country: JP (occurrence: JP)
  Receive Date: 20230405
  Receipt Date: 20230515
  Transmission Date: 20230721
  Serious: Yes (Hospitalization, Other)
  Sender: FDA-Public Use
  Company Number: JP-PFIZER INC-PV202300061056

PATIENT
  Age: 42 Year
  Sex: Female
  Weight: 48.8 kg

DRUGS (4)
  1. METHOTREXATE [Suspect]
     Active Substance: METHOTREXATE
     Indication: Benign hydatidiform mole
     Dosage: 74 MG, WEEKLY
     Route: 030
     Dates: start: 20221229, end: 20230112
  2. METHOTREXATE [Suspect]
     Active Substance: METHOTREXATE
     Dosage: 22 MG DAY 1-5 (EVERY 2 WEEKS)
     Route: 030
     Dates: start: 20230123, end: 20230206
  3. METHOTREXATE [Suspect]
     Active Substance: METHOTREXATE
     Dosage: 22 MG DAY 1-5 (EVERY 2 WEEKS)
     Route: 030
     Dates: start: 20230213, end: 20230310
  4. METOCLOPRAMIDE [Concomitant]
     Active Substance: METOCLOPRAMIDE
     Dosage: UNK

REACTIONS (13)
  - Enanthema [Recovering/Resolving]
  - Neutrophil count decreased [Unknown]
  - Stomatitis [Recovered/Resolved]
  - Dysphagia [Unknown]
  - Speech disorder [Unknown]
  - Purpura [Unknown]
  - Off label use [Unknown]
  - Rash [Unknown]
  - Gingival erosion [Unknown]
  - Gingival erythema [Unknown]
  - Blood folate decreased [Unknown]
  - Neutrophil percentage abnormal [Unknown]
  - White blood cell count decreased [Unknown]

NARRATIVE: CASE EVENT DATE: 20221229
